FAERS Safety Report 5600464-1 (Version None)
Quarter: 2008Q1

REPORT INFORMATION
  Report Type: 
  Country: None (occurrence: None)
  Receive Date: 20080123
  Receipt Date: 20080110
  Transmission Date: 20080703
  Serious: Yes (Hospitalization)
  Sender: FDA-Public Use
  Company Number: FR-AMGEN-UK260417

PATIENT
  Sex: Female

DRUGS (8)
  1. ARANESP [Suspect]
     Indication: ANAEMIA OF MALIGNANT DISEASE
     Route: 058
     Dates: start: 20070201, end: 20071102
  2. THALIDOMIDE [Suspect]
     Route: 048
     Dates: start: 20070419
  3. DEXAMETHASONE TAB [Suspect]
     Route: 048
     Dates: start: 20070419
  4. LEXOMIL [Suspect]
     Route: 048
     Dates: start: 20070901
  5. ATACAND [Suspect]
     Route: 048
  6. ALKERAN [Concomitant]
     Route: 065
     Dates: start: 20061101
  7. CRESTOR [Concomitant]
  8. GRANOCYTE [Concomitant]
     Route: 065

REACTIONS (4)
  - DRUG INTOLERANCE [None]
  - GASTROENTERITIS [None]
  - HYPERTENSION [None]
  - TRANSIENT ISCHAEMIC ATTACK [None]
